FAERS Safety Report 17255646 (Version 1)
Quarter: 2020Q1

REPORT INFORMATION
  Report Type: Report from Study
  Country: CO (occurrence: CO)
  Receive Date: 20200110
  Receipt Date: 20200110
  Transmission Date: 20200409
  Serious: Yes (Other)
  Sender: FDA-Public Use
  Company Number: CO-ROCHE-2440628

PATIENT
  Sex: Male

DRUGS (3)
  1. CELLCEPT [Suspect]
     Active Substance: MYCOPHENOLATE MOFETIL\MYCOPHENOLATE MOFETIL HYDROCHLORIDE
     Indication: PRODUCT USED FOR UNKNOWN INDICATION
     Dosage: 2 IN THE MORNING AND ONE AT NIGHT
     Route: 048
  2. METOPROLOL. [Concomitant]
     Active Substance: METOPROLOL
  3. PREDNISOLONE. [Concomitant]
     Active Substance: PREDNISOLONE

REACTIONS (8)
  - Eye irritation [Unknown]
  - Ear pain [Unknown]
  - Fatigue [Unknown]
  - Pain [Unknown]
  - Neuralgia [Unknown]
  - Cerebral ischaemia [Unknown]
  - Feeling hot [Unknown]
  - Blindness [Unknown]
